FAERS Safety Report 8505924-1 (Version None)
Quarter: 2012Q3

REPORT INFORMATION
  Report Type: 
  Country: None (occurrence: None)
  Receive Date: 20120712
  Receipt Date: 20120629
  Transmission Date: 20120928
  Serious: Yes (Disabling, Other)
  Sender: FDA-Public Use
  Company Number: JP-009507513-1207JPN000630

PATIENT

DRUGS (2)
  1. SITAGLIPTIN PHOSPHATE [Suspect]
     Indication: DIABETES MELLITUS
     Dosage: 50 MG, UNK
     Route: 048
     Dates: start: 20110223, end: 20111105
  2. NESINA [Suspect]
     Indication: DIABETES MELLITUS
     Dosage: 25 MG, QD
     Route: 048

REACTIONS (3)
  - RHEUMATOID ARTHRITIS [None]
  - EXTREMITY NECROSIS [None]
  - EOSINOPHILIA [None]
